FAERS Safety Report 8003005-7 (Version None)
Quarter: 2011Q4

REPORT INFORMATION
  Report Type: 
  Country: None (occurrence: None)
  Receive Date: 20111222
  Receipt Date: 20110816
  Transmission Date: 20120403
  Serious: No
  Sender: FDA-Public Use
  Company Number: US-GLAXOSMITHKLINE-A0941236A

PATIENT
  Age: 64 Year
  Sex: Male

DRUGS (3)
  1. AVODART [Suspect]
     Indication: POLLAKIURIA
     Dosage: .5MG PER DAY
     Route: 048
  2. PIROXICAM [Concomitant]
  3. ASPIRIN [Concomitant]

REACTIONS (1)
  - DRUG INEFFECTIVE [None]
